FAERS Safety Report 14560883 (Version 1)
Quarter: 2018Q1

REPORT INFORMATION
  Report Type: Report from Study
  Country: US (occurrence: US)
  Receive Date: 20180222
  Receipt Date: 20180222
  Transmission Date: 20180509
  Serious: No
  Sender: FDA-Public Use
  Company Number: US-ROCHE-2077056

PATIENT
  Age: 45 Year
  Sex: Female

DRUGS (11)
  1. LEXAPRO [Concomitant]
     Active Substance: ESCITALOPRAM OXALATE
     Route: 065
  2. VITAMIN B12 [Concomitant]
     Active Substance: CYANOCOBALAMIN
  3. TECFIDERA [Concomitant]
     Active Substance: DIMETHYL FUMARATE
     Route: 065
  4. EFFEXOR [Concomitant]
     Active Substance: VENLAFAXINE HYDROCHLORIDE
     Route: 065
  5. MODAFINIL. [Concomitant]
     Active Substance: MODAFINIL
  6. OCREVUS [Suspect]
     Active Substance: OCRELIZUMAB
     Indication: MULTIPLE SCLEROSIS
     Route: 065
  7. TECFIDERA [Concomitant]
     Active Substance: DIMETHYL FUMARATE
     Route: 065
  8. KLONOPIN [Suspect]
     Active Substance: CLONAZEPAM
     Indication: MULTIPLE SCLEROSIS
     Route: 065
  9. PRILOSEC [Concomitant]
     Active Substance: OMEPRAZOLE MAGNESIUM
     Route: 065
  10. LUNESTA [Concomitant]
     Active Substance: ESZOPICLONE
     Route: 065
  11. AVONEX [Concomitant]
     Active Substance: INTERFERON BETA-1A

REACTIONS (19)
  - Neck pain [Recovering/Resolving]
  - Insomnia [Unknown]
  - Pain [Unknown]
  - Paraesthesia [Unknown]
  - Headache [Unknown]
  - Abdominal distension [Unknown]
  - Fatigue [Unknown]
  - Sciatica [Unknown]
  - Vomiting [Recovering/Resolving]
  - Abdominal pain upper [Unknown]
  - Amnesia [Unknown]
  - Somnolence [Recovering/Resolving]
  - Vision blurred [Unknown]
  - Gastrointestinal disorder [Unknown]
  - Nasopharyngitis [Unknown]
  - Diarrhoea [Unknown]
  - Dizziness [Unknown]
  - Fall [Unknown]
  - Sinusitis [Unknown]

NARRATIVE: CASE EVENT DATE: 201510
